FAERS Safety Report 10017088 (Version 2)
Quarter: 2014Q2

REPORT INFORMATION
  Report Type: Spontaneous
  Country: US (occurrence: US)
  Receive Date: 20140318
  Receipt Date: 20140414
  Transmission Date: 20141212
  Serious: Yes (Hospitalization)
  Sender: FDA-Public Use
  Company Number: US-BIOGENIDEC-2014BI024116

PATIENT
  Age: 52 Year
  Sex: Male

DRUGS (11)
  1. TECFIDERA [Suspect]
     Indication: MULTIPLE SCLEROSIS
     Route: 048
     Dates: start: 20130628
  2. ACYCLOVIR [Concomitant]
  3. BACLOFEN [Concomitant]
  4. BENADRYL ALLERGY [Concomitant]
  5. CEFUROXIME AXETIL [Concomitant]
  6. CLONAZEPAM [Concomitant]
  7. CYMBALTA [Concomitant]
  8. IBUPROFEN [Concomitant]
  9. METHYLPHENIDATE HCL [Concomitant]
  10. METOPROLOL TARTRATE [Concomitant]
  11. NUEDEXTA [Concomitant]

REACTIONS (2)
  - Hip fracture [Unknown]
  - Osteoporosis [Unknown]
